FAERS Safety Report 5858211-4 (Version None)
Quarter: 2008Q3

REPORT INFORMATION
  Report Type: 
  Country: None (occurrence: None)
  Receive Date: 20080826
  Receipt Date: 20080822
  Transmission Date: 20090109
  Serious: Yes (Hospitalization)
  Sender: FDA-Public Use
  Company Number: A0731311A

PATIENT
  Age: 64 Year
  Sex: Male
  Weight: 101.4 kg

DRUGS (3)
  1. AVANDIA [Suspect]
     Dosage: 8MG PER DAY
     Route: 048
     Dates: start: 20040601, end: 20060801
  2. ACTOS [Concomitant]
     Dates: start: 20060101, end: 20060201
  3. GLUCOTROL [Concomitant]
     Dates: start: 20040601, end: 20061001

REACTIONS (3)
  - INJURY [None]
  - MYOCARDIAL INFARCTION [None]
  - PAIN [None]
